FAERS Safety Report 5373616-6 (Version None)
Quarter: 2007Q2

REPORT INFORMATION
  Report Type: 
  Country: None (occurrence: None)
  Receive Date: 20070628
  Receipt Date: 20070614
  Transmission Date: 20071010
  Serious: Yes (Hospitalization, Other)
  Sender: FDA-Public Use
  Company Number: JP-PURDUE-MAG_2007_0000553

PATIENT
  Age: 62 Year
  Sex: Female

DRUGS (63)
  1. OXYCODONE HCL [Suspect]
     Indication: CANCER PAIN
     Dosage: 160 MG, BID
     Route: 048
     Dates: start: 20061113, end: 20061114
  2. OXYCODONE HCL [Suspect]
     Dosage: 120 MG, BID
     Route: 048
     Dates: start: 20061108, end: 20061112
  3. OXYCODONE HCL [Suspect]
     Dosage: 100 MG, BID
     Route: 048
     Dates: start: 20060831, end: 20061107
  4. OXYCODONE HCL [Suspect]
     Dosage: 60 MG, BID
     Route: 048
     Dates: start: 20060719, end: 20060814
  5. OXYCODONE HCL [Suspect]
     Dosage: 40 MG, BID
     Route: 048
     Dates: start: 20060629, end: 20060718
  6. OXYCODONE HCL [Suspect]
     Dosage: 50 MG, AM
     Route: 048
     Dates: start: 20060622, end: 20060628
  7. OXYCODONE HCL [Suspect]
     Dosage: 40 MG, BID
     Route: 048
     Dates: start: 20060510, end: 20060621
  8. OXYCODONE HCL [Suspect]
     Dosage: 60 MG, BID
     Route: 048
     Dates: start: 20060419, end: 20060509
  9. OXYCODONE HCL [Suspect]
     Dosage: 40 MG, BID
     Route: 048
     Dates: start: 20060130, end: 20060418
  10. OXYCODONE HCL [Suspect]
     Dosage: 30 MG, BID
     Route: 048
     Dates: start: 20060117, end: 20060129
  11. OXYCODONE HCL [Suspect]
     Dosage: 20 MG, BID
     Route: 048
     Dates: start: 20051223, end: 20060116
  12. OXYCODONE HCL [Suspect]
     Dosage: 10 MG, BID
     Route: 048
     Dates: start: 20051124, end: 20051222
  13. OXYCODONE HCL [Suspect]
     Dosage: 40 MG, PM
     Route: 048
     Dates: start: 20060622, end: 20060628
  14. MORPHINE [Suspect]
     Indication: DRUG USE FOR UNKNOWN INDICATION
     Route: 065
  15. TAXOL [Suspect]
     Indication: OVARIAN CANCER
     Dosage: 99 MG, DAILY
     Route: 042
     Dates: start: 20060119, end: 20060119
  16. TAXOL [Suspect]
     Dosage: 90 MG, DAILY
     Route: 042
     Dates: start: 20060126, end: 20060126
  17. TAXOL [Suspect]
     Dosage: 90 MG, DAILY
     Route: 042
     Dates: start: 20060203, end: 20060203
  18. TAXOL [Suspect]
     Dosage: 90 MG, DAILY
     Route: 042
     Dates: start: 20060222, end: 20060222
  19. TAXOL [Suspect]
     Dosage: 90 MG, DAILY
     Route: 042
     Dates: start: 20060301, end: 20060301
  20. TAXOL [Suspect]
     Dosage: 90 MG, DAILY
     Route: 042
     Dates: start: 20060323, end: 20060323
  21. PONTAL [Suspect]
     Indication: CANCER PAIN
     Dosage: 500 MG, DAILY
     Route: 048
     Dates: start: 20051118, end: 20051122
  22. LENDORMIN [Concomitant]
     Indication: INSOMNIA
     Route: 048
     Dates: start: 20051124, end: 20051201
  23. DORAL [Concomitant]
     Indication: INSOMNIA
     Route: 048
     Dates: start: 20051124, end: 20060704
  24. DORAL [Concomitant]
     Route: 048
     Dates: start: 20060705
  25. DOGMATYL [Concomitant]
     Indication: DEPRESSION
     Dosage: 30 MG, DAILY
     Route: 048
     Dates: start: 20051124, end: 20051201
  26. WYPAX [Concomitant]
     Indication: DEPRESSION
     Route: 048
     Dates: start: 20051124, end: 20051206
  27. DAIKENCHUTO [Concomitant]
     Indication: INTESTINAL OBSTRUCTION
     Dosage: 7.5 GRAM, DAILY
     Route: 048
     Dates: start: 20051124, end: 20061114
  28. DERMOVATE [Concomitant]
     Indication: DRUG ERUPTION
     Route: 065
     Dates: start: 20051123, end: 20051201
  29. DIPHENHYDRAMINE HYDROCHLORIDE [Concomitant]
     Indication: PREMEDICATION
     Dosage: 50 MG, DAILY
     Route: 048
     Dates: start: 20060119, end: 20060119
  30. DIPHENHYDRAMINE HYDROCHLORIDE [Concomitant]
     Dosage: 50 MG, DAILY
     Route: 048
     Dates: start: 20060126, end: 20060126
  31. DIPHENHYDRAMINE HYDROCHLORIDE [Concomitant]
     Dosage: 50 MG, DAILY
     Route: 048
     Dates: start: 20060222, end: 20060222
  32. DIPHENHYDRAMINE HYDROCHLORIDE [Concomitant]
     Dosage: 50 MG, DAILY
     Route: 048
     Dates: start: 20060301, end: 20060301
  33. DIPHENHYDRAMINE HYDROCHLORIDE [Concomitant]
     Dosage: 50 MG, DAILY
     Route: 048
     Dates: start: 20060323, end: 20060323
  34. NERIPROCT [Concomitant]
     Indication: HAEMORRHOIDS
     Dosage: 2 GRAM, DAILY
     Route: 065
     Dates: start: 20060207, end: 20061105
  35. ZOFRAN [Concomitant]
     Indication: PROPHYLAXIS OF NAUSEA AND VOMITING
     Dosage: 4 MG, DAILY
     Route: 048
     Dates: start: 20060207, end: 20060310
  36. ZOFRAN [Concomitant]
     Dosage: 4 MG, DAILY
     Route: 042
     Dates: start: 20060119, end: 20060119
  37. ZOFRAN [Concomitant]
     Dosage: 4 MG, DAILY
     Route: 042
     Dates: start: 20060126, end: 20060126
  38. ZOFRAN [Concomitant]
     Dosage: 4 MG, DAILY
     Route: 042
     Dates: start: 20060203, end: 20060203
  39. ZOFRAN [Concomitant]
     Dosage: 4 MG, DAILY
     Route: 042
     Dates: start: 20060223, end: 20060223
  40. ZOFRAN [Concomitant]
     Dosage: 4 MG, DAILY
     Route: 042
     Dates: start: 20060301, end: 20060301
  41. ZOFRAN [Concomitant]
     Dosage: 4 MG, DAILY
     Route: 042
     Dates: start: 20060323, end: 20060323
  42. SUCRALFATE [Concomitant]
     Indication: GASTRITIS
     Route: 048
     Dates: start: 20060421, end: 20060509
  43. LORNOXICAM [Concomitant]
     Indication: CANCER PAIN
     Dosage: 12 MG, DAILY
     Route: 048
     Dates: start: 20060707, end: 20061114
  44. BUSCOPAN [Concomitant]
     Indication: ENTEROCOLITIS
     Route: 048
     Dates: start: 20060721, end: 20060905
  45. ALOSENN [Concomitant]
     Indication: CONSTIPATION
     Dosage: 2 GRAM, DAILY
     Route: 048
     Dates: start: 20060727, end: 20060731
  46. TRANSAMIN [Concomitant]
     Indication: TONSILLITIS
     Dosage: 750 MG, DAILY
     Route: 048
     Dates: start: 20060904, end: 20060910
  47. POVIDONE IODINE GARGLE AND MOUTHWASH [Concomitant]
     Indication: TONSILLITIS
     Route: 065
     Dates: start: 20060905, end: 20060910
  48. DECADRON [Concomitant]
     Indication: OVARIAN CANCER
     Dosage: 20 MG, DAILY
     Route: 042
     Dates: start: 20060119, end: 20060119
  49. DECADRON [Concomitant]
     Dosage: 10 MG, DAILY
     Route: 042
     Dates: start: 20060126, end: 20060126
  50. DECADRON [Concomitant]
     Dosage: 4 MG, DAILY
     Route: 042
     Dates: start: 20060203, end: 20060203
  51. DECADRON [Concomitant]
     Dosage: 2 MG, DAILY
     Route: 042
     Dates: start: 20060222, end: 20060222
  52. DECADRON [Concomitant]
     Dosage: 1 MG, DAILY
     Route: 042
     Dates: start: 20060301, end: 20060301
  53. DECADRON [Concomitant]
     Dosage: 1 MG, DAILY
     Route: 042
     Dates: start: 20060323, end: 20060323
  54. ZANTAC [Concomitant]
     Indication: OVARIAN CANCER
     Dosage: 50 MG, DAILY
     Route: 042
     Dates: start: 20060119, end: 20060119
  55. ZANTAC [Concomitant]
     Dosage: 50 MG, DAILY
     Route: 042
     Dates: start: 20060126, end: 20060126
  56. ZANTAC [Concomitant]
     Dosage: 50 MG, DAILY
     Route: 042
     Dates: start: 20060203, end: 20060203
  57. ZANTAC [Concomitant]
     Dosage: 50 MG, DAILY
     Route: 042
     Dates: start: 20060222, end: 20060222
  58. ZANTAC [Concomitant]
     Dosage: 50 MG, DAILY
     Route: 042
     Dates: start: 20060301, end: 20060301
  59. ZANTAC [Concomitant]
     Dosage: 50 MG, DAILY
     Route: 042
     Dates: start: 20060323, end: 20060323
  60. NEUTROGIN [Concomitant]
     Indication: NEUTROPENIA
     Dosage: 100 MCG, DAILY
     Route: 058
     Dates: start: 20060310, end: 20060312
  61. NAUZELIN [Concomitant]
     Indication: DRUG USE FOR UNKNOWN INDICATION
     Dosage: UNK, UNK
     Route: 054
     Dates: start: 20051225, end: 20060109
  62. PRIMPERAN INJ [Concomitant]
     Indication: PROPHYLAXIS
     Dosage: 15 MG, DAILY
     Route: 048
     Dates: start: 20051124, end: 20051201
  63. OLOPATADINE HYDROCHLORIDE [Concomitant]
     Indication: RASH
     Dosage: 10 MG, DAILY
     Route: 048
     Dates: start: 20051126, end: 20051201

REACTIONS (18)
  - ABDOMINAL PAIN UPPER [None]
  - CONSTIPATION [None]
  - DECREASED APPETITE [None]
  - DIARRHOEA [None]
  - DIZZINESS [None]
  - HAEMORRHOIDS [None]
  - HEPATIC FUNCTION ABNORMAL [None]
  - HYPOAESTHESIA [None]
  - INTESTINAL OBSTRUCTION [None]
  - MALAISE [None]
  - MELAENA [None]
  - MUSCULOSKELETAL STIFFNESS [None]
  - NAUSEA [None]
  - NEUTROPHIL COUNT DECREASED [None]
  - PROCTALGIA [None]
  - SOMNOLENCE [None]
  - SUICIDAL IDEATION [None]
  - WHITE BLOOD CELL COUNT DECREASED [None]
